FAERS Safety Report 7200592-3 (Version None)
Quarter: 2010Q4

REPORT INFORMATION
  Report Type: 
  Country: None (occurrence: None)
  Receive Date: 20101228
  Receipt Date: 20101221
  Transmission Date: 20110411
  Serious: Yes (Other)
  Sender: FDA-Public Use
  Company Number: CHPA2010US19166

PATIENT
  Age: 29 Year
  Sex: Male
  Weight: 99.773 kg

DRUGS (1)
  1. NODOZ [Suspect]
     Indication: DEPRESSED LEVEL OF CONSCIOUSNESS
     Dosage: 400 MG, ONCE/SINGLE
     Route: 048
     Dates: start: 20101217, end: 20101217

REACTIONS (4)
  - CHEST PAIN [None]
  - EXTRASYSTOLES [None]
  - HEART RATE INCREASED [None]
  - OVERDOSE [None]
